FAERS Safety Report 6086679-X (Version None)
Quarter: 2009Q1

REPORT INFORMATION
  Report Type: 
  Country: None (occurrence: None)
  Receive Date: 20090213
  Receipt Date: 20090128
  Transmission Date: 20090719
  Serious: Yes (Other)
  Sender: FDA-Public Use
  Company Number: B0557988A

PATIENT
  Sex: Female

DRUGS (2)
  1. TOPOTECAN HYDROCHLORIDE (FORMULATION UNKNOWN) (GENERIC) (TOPOTECAN) [Suspect]
     Indication: OVARIAN CANCER
     Dosage: CYCLIC
  2. BEVACIZUMAB (FORMULATION UNKNOWN) (BEVACIZUMAB) [Suspect]
     Indication: OVARIAN CANCER
     Dosage: 10 MG KG / CYCLIC

REACTIONS (2)
  - NAUSEA [None]
  - SMALL INTESTINAL OBSTRUCTION [None]
